FAERS Safety Report 7545743-6 (Version None)
Quarter: 2011Q2

REPORT INFORMATION
  Report Type: 
  Country: None (occurrence: None)
  Receive Date: 20110614
  Receipt Date: 20110606
  Transmission Date: 20111010
  Serious: Yes (Hospitalization)
  Sender: FDA-Public Use
  Company Number: JP-SANOFI-AVENTIS-2010SA010430

PATIENT
  Age: 76 Year
  Sex: Male

DRUGS (11)
  1. VIBRAMYCIN TABS [Concomitant]
     Indication: RHEUMATOID ARTHRITIS
     Route: 048
  2. PREDNISOLONE [Concomitant]
     Indication: RHEUMATOID ARTHRITIS
     Route: 048
  3. BACTRIM [Concomitant]
     Indication: PROPHYLAXIS
     Route: 048
  4. VIBRAMYCIN TABS [Concomitant]
     Indication: ADVERSE EVENT
     Route: 048
  5. ARAVA [Suspect]
     Indication: RHEUMATOID ARTHRITIS
     Route: 048
     Dates: start: 20080508, end: 20081007
  6. TOYOFAROL [Concomitant]
     Indication: OSTEOPOROSIS
     Route: 048
  7. ETANERCEPT [Suspect]
     Indication: RHEUMATOID ARTHRITIS
     Route: 058
  8. ALENDRONATE SODIUM [Concomitant]
     Indication: OSTEOPOROSIS
     Route: 048
  9. LOXOPROFEN [Concomitant]
     Indication: RHEUMATOID ARTHRITIS
     Dosage: UP TO 180 MG PER DAY
     Route: 048
  10. MUCOSTA [Concomitant]
     Indication: GASTRITIS PROPHYLAXIS
     Dosage: UP TO 300 MG PER DAY
     Route: 048
  11. FOLIC ACID [Concomitant]
     Indication: ANAEMIA PROPHYLAXIS
     Route: 048

REACTIONS (5)
  - ANGINA PECTORIS [None]
  - DIARRHOEA [None]
  - DEHYDRATION [None]
  - RENAL IMPAIRMENT [None]
  - INFECTION [None]
